FAERS Safety Report 5690546-0 (Version None)
Quarter: 2008Q2

REPORT INFORMATION
  Report Type: 
  Country: None (occurrence: None)
  Receive Date: 20080401
  Receipt Date: 20080320
  Transmission Date: 20081010
  Serious: Yes (Hospitalization)
  Sender: FDA-Public Use
  Company Number: US-BAYER-200815353GPV

PATIENT
  Age: 74 Year
  Sex: Male

DRUGS (3)
  1. DACARBAZINE [Suspect]
     Indication: MALIGNANT MELANOMA
     Dosage: AS USED: 750 MG/M2
     Route: 042
     Dates: start: 20071112, end: 20080306
  2. IPILIMUMAB OR PLACEBO [Suspect]
     Indication: MALIGNANT MELANOMA
     Route: 042
     Dates: start: 20071112, end: 20080306
  3. ACENOCOUMAROL [Concomitant]
     Indication: COAGULATION TIME PROLONGED
     Route: 065

REACTIONS (3)
  - ABDOMINAL PAIN [None]
  - HEPATITIS [None]
  - MALAISE [None]
